FAERS Safety Report 8057507-8 (Version None)
Quarter: 2012Q1

REPORT INFORMATION
  Report Type: 
  Country: None (occurrence: None)
  Receive Date: 20120119
  Receipt Date: 20120112
  Transmission Date: 20120608
  Serious: Yes (Disabling, Other)
  Sender: FDA-Public Use
  Company Number: US-ASTRAZENECA-2011SE07905

PATIENT
  Age: 78 Year
  Sex: Male

DRUGS (16)
  1. SEROQUEL [Suspect]
     Route: 048
  2. NEXIUM [Concomitant]
  3. ASMINAX [Concomitant]
     Route: 055
  4. CRESTOR [Suspect]
     Route: 048
  5. SINEMET [Concomitant]
  6. OS CAL [Concomitant]
  7. ASPIRIN [Concomitant]
  8. SPIRIVA [Concomitant]
     Route: 055
  9. FIBERCON [Concomitant]
  10. GEPULOX PATCH [Concomitant]
  11. COUMADIN [Concomitant]
  12. MULTI-VITAMIN [Concomitant]
  13. PAXIL [Concomitant]
  14. TOPROL-XL [Suspect]
     Route: 048
  15. COLACE [Concomitant]
  16. WEPACOLD [Concomitant]

REACTIONS (11)
  - PARKINSON'S DISEASE [None]
  - PARALYSIS [None]
  - MUSCLE SPASMS [None]
  - INFECTION [None]
  - THROAT TIGHTNESS [None]
  - DRUG HYPERSENSITIVITY [None]
  - HALLUCINATION [None]
  - ABASIA [None]
  - ADVERSE DRUG REACTION [None]
  - CARDIAC DISORDER [None]
  - APHAGIA [None]
